FAERS Safety Report 11367825 (Version 1)
Quarter: 2015Q3

REPORT INFORMATION
  Report Type: Spontaneous
  Country: US (occurrence: None)
  Receive Date: 20150811
  Receipt Date: 20150811
  Transmission Date: 20151125
  Serious: Yes (Disabling)
  Sender: FDA-Public Use
  Company Number: None

PATIENT
  Age: 60 Year
  Sex: Female
  Weight: 132.45 kg

DRUGS (14)
  1. ALLOPURINOL. [Concomitant]
     Active Substance: ALLOPURINOL
  2. VITAMIN B12 [Concomitant]
     Active Substance: CYANOCOBALAMIN
  3. ATORVASTATIN [Concomitant]
     Active Substance: ATORVASTATIN
  4. SUPER B COMPLEX [Concomitant]
     Active Substance: CYANOCOBALAMIN\DEXPANTHENOL\NIACINAMIDE\PYRIDOXINE HYDROCHLORIDE\RIBOFLAVIN 5^-PHOSPHATE SODIUM\THIAMINE HYDROCHLORIDE\VITAMIN B COMPLEX
  5. VICTOZA [Concomitant]
     Active Substance: LIRAGLUTIDE
  6. MULTIBETIC DIABETIC VIT/MINERAL [Concomitant]
  7. BAYER [Concomitant]
     Active Substance: ASPIRIN
  8. LEVETIRACETAM. [Suspect]
     Active Substance: LEVETIRACETAM
     Dosage: 2 PILLULES, BEDTIME, BY MOUTH
     Dates: start: 20141216
  9. HUMALIN N [Concomitant]
  10. LISINOPRIL. [Concomitant]
     Active Substance: LISINOPRIL
  11. D3 [Concomitant]
     Active Substance: 25-HYDROXYCHOLECALCIFEROL, 5-TRANS-
  12. TYLENOL [Concomitant]
     Active Substance: ACETAMINOPHEN
  13. TORSEMIDE. [Concomitant]
     Active Substance: TORSEMIDE
  14. HUMALOG [Concomitant]
     Active Substance: INSULIN LISPRO

REACTIONS (8)
  - Headache [None]
  - Dyspnoea [None]
  - Hypotension [None]
  - Alopecia [None]
  - Generalised tonic-clonic seizure [None]
  - Cough [None]
  - Amnesia [None]
  - Weight increased [None]

NARRATIVE: CASE EVENT DATE: 201501
